FAERS Safety Report 11482413 (Version 5)
Quarter: 2015Q4

REPORT INFORMATION
  Report Type: Spontaneous
  Country: JP (occurrence: JP)
  Receive Date: 20150909
  Receipt Date: 20151020
  Transmission Date: 20160304
  Serious: Yes (Other)
  Sender: FDA-Public Use
  Company Number: PHJP2015JP015361

PATIENT
  Age: 77 Year
  Sex: Male

DRUGS (2)
  1. EXJADE [Suspect]
     Active Substance: DEFERASIROX
     Indication: HEPATOCELLULAR CARCINOMA
     Dosage: 250 MG, QD
     Route: 048
     Dates: start: 20150409
  2. SORAFENIB [Suspect]
     Active Substance: SORAFENIB
     Indication: HEPATOCELLULAR CARCINOMA
     Dosage: 400 MG, QD
     Route: 048
     Dates: start: 201309

REACTIONS (4)
  - Off label use [Unknown]
  - Cholangitis [Recovering/Resolving]
  - Device related infection [Unknown]
  - Diarrhoea [Recovered/Resolved]

NARRATIVE: CASE EVENT DATE: 20150409
